FAERS Safety Report 10190140 (Version 1)
Quarter: 2014Q2

REPORT INFORMATION
  Report Type: Spontaneous
  Country: US (occurrence: None)
  Receive Date: 20140521
  Receipt Date: 20140521
  Transmission Date: 20141212
  Serious: No
  Sender: FDA-Public Use
  Company Number: None

PATIENT
  Sex: Female
  Weight: 51.26 kg

DRUGS (1)
  1. CLIMARA [Suspect]
     Dosage: 0.1 ,G 24 HR ONCE A WEEK

REACTIONS (2)
  - Drug ineffective [None]
  - Product substitution issue [None]
